FAERS Safety Report 5829495-3 (Version None)
Quarter: 2008Q3

REPORT INFORMATION
  Report Type: 
  Country: None (occurrence: None)
  Receive Date: 20080729
  Receipt Date: 20080714
  Transmission Date: 20090109
  Serious: Yes (Other)
  Sender: FDA-Public Use
  Company Number: 8034718

PATIENT
  Age: 37 Year
  Sex: Female
  Weight: 54.5 kg

DRUGS (7)
  1. KEPPRA [Suspect]
     Indication: CONVULSION
     Dosage: 1000 MG 2/D PO
     Route: 048
     Dates: start: 20080417
  2. VINBLASTINE SULFATE [Concomitant]
  3. CISPLATIN [Concomitant]
  4. GEMZAR [Concomitant]
  5. ZOFRAN [Concomitant]
  6. EMEND [Concomitant]
  7. KYTRIL [Concomitant]

REACTIONS (2)
  - ANXIETY [None]
  - PLATELET COUNT DECREASED [None]
